FAERS Safety Report 19725769 (Version 1)
Quarter: 2021Q3

REPORT INFORMATION
  Report Type: Spontaneous
  Country: US (occurrence: US)
  Receive Date: 20210819
  Receipt Date: 20210819
  Transmission Date: 20211014
  Serious: Yes (Disabling)
  Sender: FDA-Public Use
  Company Number: None

PATIENT
  Age: 64 Year
  Sex: Male
  Weight: 93.6 kg

DRUGS (4)
  1. ENTRESTO [Suspect]
     Active Substance: SACUBITRIL\VALSARTAN
     Indication: CARDIAC FAILURE CHRONIC
     Dosage: ?          QUANTITY:1 TABLET(S);?
     Route: 048
  2. IMPLANT DEFIBRILLATOR/PACEMAKER [Concomitant]
  3. ASPIRIN. [Suspect]
     Active Substance: ASPIRIN
  4. CARVEDILOL. [Suspect]
     Active Substance: CARVEDILOL
     Indication: CARDIAC FAILURE CHRONIC
     Dosage: ?          QUANTITY:1 TABLET(S);?
     Route: 048

REACTIONS (14)
  - Dyspnoea [None]
  - Decreased appetite [None]
  - Weight increased [None]
  - Dizziness [None]
  - Fluid retention [None]
  - Headache [None]
  - Constipation [None]
  - Muscular weakness [None]
  - Loss of consciousness [None]
  - Lethargy [None]
  - Peripheral swelling [None]
  - Disorientation [None]
  - Loss of personal independence in daily activities [None]
  - Swelling face [None]

NARRATIVE: CASE EVENT DATE: 20210520
